FAERS Safety Report 24817063 (Version 1)
Quarter: 2025Q1

REPORT INFORMATION
  Report Type: Spontaneous
  Country: CN (occurrence: CN)
  Receive Date: 20250108
  Receipt Date: 20250108
  Transmission Date: 20250408
  Serious: Yes (Other)
  Sender: ROCHE
  Company Number: CN-ROCHE-10000173963

PATIENT
  Age: 56 Year
  Sex: Male

DRUGS (1)
  1. BEVACIZUMAB [Suspect]
     Active Substance: BEVACIZUMAB
     Indication: Rectal cancer
     Route: 042
     Dates: start: 20241210

REACTIONS (1)
  - Hepatic function abnormal [Recovering/Resolving]

NARRATIVE: CASE EVENT DATE: 20241226
